FAERS Safety Report 20959307 (Version 1)
Quarter: 2022Q2

REPORT INFORMATION
  Report Type: Report from Study
  Country: US (occurrence: None)
  Receive Date: 20220614
  Receipt Date: 20220614
  Transmission Date: 20220721
  Serious: Yes (Hospitalization)
  Sender: FDA-Public Use
  Company Number: US-ROCHE-3078279

PATIENT
  Age: 81 Year
  Sex: Male
  Weight: 79.55 kg

DRUGS (2)
  1. ATEZOLIZUMAB [Suspect]
     Active Substance: ATEZOLIZUMAB
     Indication: Pancreatic carcinoma
     Route: 041
     Dates: start: 20220324
  2. CABOZANTINIB [Suspect]
     Active Substance: CABOZANTINIB
     Indication: Pancreatic carcinoma
     Dosage: DATE OF MOST RECENT DOSE PRIOR TO EVENT: 12/APR/2022
     Route: 048
     Dates: start: 20220324

REACTIONS (1)
  - Muscular weakness [Not Recovered/Not Resolved]

NARRATIVE: CASE EVENT DATE: 20220404
